FAERS Safety Report 4674899-8 (Version None)
Quarter: 2005Q2

REPORT INFORMATION
  Report Type: 
  Country: None (occurrence: None)
  Receive Date: 20050526
  Receipt Date: 20040524
  Transmission Date: 20051028
  Serious: Yes (Hospitalization)
  Sender: FDA-Public Use
  Company Number: GB-ABBOTT-04P-167-0261915-00

PATIENT
  Sex: Male
  Weight: 76.8 kg

DRUGS (1)
  1. SIBUTRAMINE [Suspect]
     Indication: OBESITY
     Route: 048
     Dates: start: 20040519, end: 20040521

REACTIONS (1)
  - LYMPHATIC OBSTRUCTION [None]
